FAERS Safety Report 8512613-6 (Version None)
Quarter: 2012Q3

REPORT INFORMATION
  Report Type: 
  Country: None (occurrence: None)
  Receive Date: 20120716
  Receipt Date: 20120711
  Transmission Date: 20120928
  Serious: No
  Sender: FDA-Public Use
  Company Number: US-BAYER-2012-070342

PATIENT

DRUGS (3)
  1. ALEVE (CAPLET) [Suspect]
     Indication: HEADACHE
  2. ACETAMINOPHEN [Suspect]
     Indication: HEADACHE
  3. IBUPROFEN (ADVIL) [Suspect]
     Indication: HEADACHE

REACTIONS (1)
  - HEADACHE [None]
